FAERS Safety Report 20146759 (Version 5)
Quarter: 2023Q1

REPORT INFORMATION
  Report Type: Report from Study
  Country: US (occurrence: US)
  Receive Date: 20211203
  Receipt Date: 20230308
  Transmission Date: 20230418
  Serious: Yes (Other)
  Sender: FDA-Public Use
  Company Number: US-BAUSCH-BL-2021-036884

PATIENT
  Age: 57 Year
  Sex: Female

DRUGS (7)
  1. XIFAXAN [Suspect]
     Active Substance: RIFAXIMIN
     Indication: Hepatic encephalopathy
     Dosage: 3.5 TO 5 YEARS AGO
     Route: 048
     Dates: start: 201611, end: 2021
  2. XIFAXAN [Suspect]
     Active Substance: RIFAXIMIN
     Indication: Irritable bowel syndrome
     Route: 048
     Dates: start: 2021
  3. XIFAXAN [Suspect]
     Active Substance: RIFAXIMIN
     Indication: Gastrointestinal bacterial infection
     Route: 048
     Dates: start: 2021, end: 2021
  4. XIFAXAN [Suspect]
     Active Substance: RIFAXIMIN
     Route: 048
  5. PANTOPRAZOLE [Concomitant]
     Active Substance: PANTOPRAZOLE
     Indication: Product used for unknown indication
     Route: 048
  6. MYRBETRIQ [Concomitant]
     Active Substance: MIRABEGRON
     Indication: Product used for unknown indication
     Dosage: AS DIRECTED
     Route: 048
  7. LACTULOSE [Concomitant]
     Active Substance: LACTULOSE
     Indication: Product used for unknown indication

REACTIONS (11)
  - Brain oedema [Unknown]
  - Meningitis tuberculous [Unknown]
  - Surgery [Unknown]
  - Amnesia [Unknown]
  - Malaria [Unknown]
  - Nervousness [Unknown]
  - Patient dissatisfaction with treatment [Unknown]
  - Insurance issue [Unknown]
  - Product prescribing issue [Unknown]
  - Intentional product use issue [Unknown]
  - Therapy interrupted [Unknown]

NARRATIVE: CASE EVENT DATE: 20200101
